FAERS Safety Report 7559221-1 (Version None)
Quarter: 2011Q2

REPORT INFORMATION
  Report Type: 
  Country: None (occurrence: None)
  Receive Date: 20110613
  Receipt Date: 20110607
  Transmission Date: 20111010
  Serious: Yes (Hospitalization, Other)
  Sender: FDA-Public Use
  Company Number: ACO_24139_2011

PATIENT
  Age: 59 Year
  Sex: Female

DRUGS (14)
  1. COPAXONE [Concomitant]
  2. INSULIN (INSULIN) [Concomitant]
  3. TRAZODONE HCL [Concomitant]
  4. PROBIOTIC (BIFIDOBACTERIUM LACTIS) [Concomitant]
  5. BACLOFEN [Concomitant]
  6. FLOMAX [Concomitant]
  7. AMPYRA [Suspect]
     Indication: PRODUCT USED FOR UNKNOWN INDICATION
     Dosage: 10 MG, BID, ORAL
     Route: 048
     Dates: start: 20110301, end: 20110414
  8. CALCIUM (CALCIUM) [Concomitant]
  9. MULTI-VITAMIN [Concomitant]
  10. FIBER (POLYCARBOPHIL CALCIUM) [Concomitant]
  11. AMPYRA [Suspect]
     Indication: PRODUCT USED FOR UNKNOWN INDICATION
     Dosage: 10 MG, QD, ORAL
     Route: 048
     Dates: start: 20110301, end: 20110414
  12. GABAPENTIN [Concomitant]
  13. WELLBUTRIN [Suspect]
     Indication: PRODUCT USED FOR UNKNOWN INDICATION
     Dates: end: 20110414
  14. MIRALAX [Concomitant]

REACTIONS (10)
  - HYPOGLYCAEMIA [None]
  - TREMOR [None]
  - INAPPROPRIATE AFFECT [None]
  - CONVULSION [None]
  - URINARY RETENTION [None]
  - MULTIPLE SCLEROSIS RELAPSE [None]
  - DISORIENTATION [None]
  - SPEECH DISORDER [None]
  - BLOOD GLUCOSE FLUCTUATION [None]
  - INAPPROPRIATE SCHEDULE OF DRUG ADMINISTRATION [None]
